FAERS Safety Report 7883615-8 (Version None)
Quarter: 2011Q4

REPORT INFORMATION
  Report Type: 
  Country: None (occurrence: None)
  Receive Date: 20111102
  Receipt Date: 20111025
  Transmission Date: 20120403
  Serious: Yes (Other)
  Sender: FDA-Public Use
  Company Number: BR-US-EMD SERONO, INC.-7092086

PATIENT
  Sex: Female

DRUGS (4)
  1. OMEPRAZOLE [Concomitant]
  2. REBIF [Suspect]
     Indication: PRODUCT USED FOR UNKNOWN INDICATION
     Dates: start: 20040330
  3. ACETAMINOPHEN [Concomitant]
     Indication: PREMEDICATION
  4. DONAREN [Concomitant]

REACTIONS (6)
  - INFLUENZA LIKE ILLNESS [None]
  - FIBROMYALGIA [None]
  - RHINORRHOEA [None]
  - SOMNOLENCE [None]
  - HYPERTENSION [None]
  - DIABETES MELLITUS [None]
